FAERS Safety Report 6644372-6 (Version None)
Quarter: 2010Q1

REPORT INFORMATION
  Report Type: 
  Country: None (occurrence: None)
  Receive Date: 20100322
  Receipt Date: 20100302
  Transmission Date: 20100710
  Serious: Yes (Other)
  Sender: FDA-Public Use
  Company Number: BY-SANOFI-AVENTIS-2010SA015544

PATIENT
  Sex: Female
  Weight: 50 kg

DRUGS (5)
  1. SOLOSTAR [Suspect]
     Dates: start: 20090101
  2. SOLOSTAR [Suspect]
     Dates: start: 20100301, end: 20100302
  3. APIDRA SOLOSTAR [Suspect]
     Indication: DIABETES MELLITUS
     Dosage: 12-16 IU DAILY
     Dates: start: 20090101
  4. SOLOSTAR [Concomitant]
  5. LANTUS [Concomitant]

REACTIONS (5)
  - DIZZINESS [None]
  - FEELING HOT [None]
  - HYPERGLYCAEMIA [None]
  - HYPERHIDROSIS [None]
  - HYPOGLYCAEMIA [None]
